FAERS Safety Report 15822652 (Version 1)
Quarter: 2019Q1

REPORT INFORMATION
  Report Type: Spontaneous
  Country: JP (occurrence: JP)
  Receive Date: 20190114
  Receipt Date: 20190114
  Transmission Date: 20190417
  Serious: Yes (Death, Other)
  Sender: FDA-Public Use
  Company Number: JP-ASTRAZENECA-2019SE05641

PATIENT
  Age: 68 Year
  Sex: Female

DRUGS (2)
  1. OSIMERTINIB. [Suspect]
     Active Substance: OSIMERTINIB
     Indication: LUNG ADENOCARCINOMA
     Route: 048
  2. GEFITINIB. [Suspect]
     Active Substance: GEFITINIB
     Indication: LUNG ADENOCARCINOMA
     Route: 048

REACTIONS (11)
  - Aspartate aminotransferase increased [Unknown]
  - Metastases to central nervous system [Unknown]
  - Fatigue [Unknown]
  - Metastases to meninges [Unknown]
  - Alanine aminotransferase increased [Unknown]
  - Pleural effusion [Unknown]
  - Cerebral ventricle dilatation [Unknown]
  - EGFR gene mutation [Unknown]
  - Decreased appetite [Unknown]
  - Malignant neoplasm progression [Fatal]
  - Treatment failure [Unknown]
